FAERS Safety Report 7436040-8 (Version None)
Quarter: 2011Q2

REPORT INFORMATION
  Report Type: 
  Country: None (occurrence: None)
  Receive Date: 20110418
  Receipt Date: 20110331
  Transmission Date: 20111010
  Serious: Yes (Other)
  Sender: FDA-Public Use
  Company Number: 2010002120

PATIENT
  Age: 69 Year
  Sex: Female
  Weight: 46.1 kg

DRUGS (6)
  1. ETODOLAC [Concomitant]
  2. DILTIAZEM HYDROCHLORIDE [Concomitant]
  3. ERLOTINIB HYDROCHLORIDE [Suspect]
     Indication: LUNG ADENOCARCINOMA
     Dosage: (150 MG,QD),ORAL
     Route: 048
     Dates: start: 20081127, end: 20090224
  4. HUSCODE (HUSCODE THYRADIN) [Concomitant]
  5. MARZULENE-S (MARZULENE S) [Concomitant]
  6. THRYADIN S (LEVOTHYROXINE SODIUM) [Concomitant]

REACTIONS (11)
  - PURPURA [None]
  - EXFOLIATIVE RASH [None]
  - LUNG ADENOCARCINOMA [None]
  - DISEASE PROGRESSION [None]
  - MOUTH ULCERATION [None]
  - PARONYCHIA [None]
  - HYPERTENSION [None]
  - GASTRITIS [None]
  - DIARRHOEA [None]
  - HYPOTHYROIDISM [None]
  - CHEILITIS [None]
